FAERS Safety Report 8381894-4 (Version None)
Quarter: 2012Q2

REPORT INFORMATION
  Report Type: 
  Country: None (occurrence: None)
  Receive Date: 20120523
  Receipt Date: 20120523
  Transmission Date: 20120825
  Serious: No
  Sender: FDA-Public Use
  Company Number: None

PATIENT
  Age: 41 Year
  Sex: Female
  Weight: 127.0072 kg

DRUGS (6)
  1. CITIRIZINE HYDROCHLORIDE [Suspect]
     Indication: RHINORRHOEA
     Dosage: 10MG 1X, BY MOUTH
     Route: 048
     Dates: start: 20120422
  2. CITIRIZINE HYDROCHLORIDE [Suspect]
     Indication: MULTIPLE ALLERGIES
     Dosage: 10MG 1X, BY MOUTH
     Route: 048
     Dates: start: 20120422
  3. CITIRIZINE HYDROCHLORIDE [Suspect]
     Indication: LACRIMATION INCREASED
     Dosage: 10MG 1X, BY MOUTH
     Route: 048
     Dates: start: 20120422
  4. CITIRIZINE HYDROCHLORIDE [Suspect]
     Indication: RHINORRHOEA
     Dosage: 10MG 1X, BY MOUTH
     Route: 048
     Dates: start: 20100301
  5. CITIRIZINE HYDROCHLORIDE [Suspect]
     Indication: MULTIPLE ALLERGIES
     Dosage: 10MG 1X, BY MOUTH
     Route: 048
     Dates: start: 20100301
  6. CITIRIZINE HYDROCHLORIDE [Suspect]
     Indication: LACRIMATION INCREASED
     Dosage: 10MG 1X, BY MOUTH
     Route: 048
     Dates: start: 20100301

REACTIONS (3)
  - FEELING HOT [None]
  - BURNING SENSATION [None]
  - PRURITUS [None]
